FAERS Safety Report 8485735-6 (Version None)
Quarter: 2012Q3

REPORT INFORMATION
  Report Type: 
  Country: None (occurrence: None)
  Receive Date: 20120703
  Receipt Date: 20120627
  Transmission Date: 20120928
  Serious: Yes (Hospitalization, Other)
  Sender: FDA-Public Use
  Company Number: US-B.I. PHARMACEUTICALS,INC./RIDGEFIELD-2012-BP-13167BP

PATIENT
  Sex: Male
  Weight: 84 kg

DRUGS (10)
  1. ROBAXIN [Concomitant]
     Indication: BACK PAIN
  2. LIPITOR [Concomitant]
     Dosage: 20 MG
  3. PRADAXA [Suspect]
     Indication: ATRIAL FIBRILLATION
     Dosage: 300 MG
     Route: 048
     Dates: start: 20101112, end: 20120301
  4. CARDIZEM [Concomitant]
     Dosage: 240 MG
  5. SINEMET [Concomitant]
  6. LEVADOPA [Concomitant]
     Route: 048
  7. CARBIDOPA [Concomitant]
     Indication: PARKINSON'S DISEASE
     Route: 048
  8. LOSARTAN POTASSIUM [Concomitant]
     Dosage: 50 MG
  9. PRADAXA [Suspect]
     Dosage: 150 MG
     Route: 048
     Dates: start: 20120301, end: 20120327
  10. LIPITOR [Concomitant]
     Indication: BLOOD CHOLESTEROL ABNORMAL
     Route: 048

REACTIONS (6)
  - RECTAL HAEMORRHAGE [None]
  - ABDOMINAL PAIN [None]
  - HEPATIC LESION [None]
  - PAIN [None]
  - SYNCOPE [None]
  - COLON CANCER [None]
